FAERS Safety Report 17263565 (Version 2)
Quarter: 2020Q1

REPORT INFORMATION
  Report Type: Spontaneous
  Country: US (occurrence: US)
  Receive Date: 20200113
  Receipt Date: 20200123
  Transmission Date: 20200409
  Serious: No
  Sender: FDA-Public Use
  Company Number: US-GW PHARMA-202001USGW00064

PATIENT

DRUGS (1)
  1. NO GW SUSPECT PRODUCT [Suspect]
     Active Substance: UNSPECIFIED INGREDIENT
     Indication: LENNOX-GASTAUT SYNDROME
     Dosage: UNK
     Route: 065

REACTIONS (2)
  - Dry eye [Unknown]
  - Decreased appetite [Unknown]
